FAERS Safety Report 4430903-3 (Version None)
Quarter: 2004Q3

REPORT INFORMATION
  Report Type: 
  Country: None (occurrence: None)
  Receive Date: 20040823
  Receipt Date: 20040804
  Transmission Date: 20050211
  Serious: Yes (Other)
  Sender: FDA-Public Use
  Company Number: NO-ROCHE-376771

PATIENT
  Age: 56 Year
  Sex: Male

DRUGS (2)
  1. XENICAL [Suspect]
     Indication: OBESITY
     Route: 048
     Dates: start: 20040715, end: 20040802
  2. REDUCTIL [Concomitant]
     Indication: OBESITY
     Dosage: 10 OR 15MG CAPSULES.
     Route: 048
     Dates: start: 20040415

REACTIONS (2)
  - BLOOD PRESSURE INCREASED [None]
  - DIARRHOEA [None]
